FAERS Safety Report 6721543-1 (Version None)
Quarter: 2010Q2

REPORT INFORMATION
  Report Type: 
  Country: None (occurrence: None)
  Receive Date: 20100512
  Receipt Date: 20100506
  Transmission Date: 20101027
  Serious: Yes (Hospitalization)
  Sender: FDA-Public Use
  Company Number: NL-CEPHALON-2010002632

PATIENT
  Sex: Female

DRUGS (2)
  1. MODAFINIL [Suspect]
     Indication: FATIGUE
     Route: 048
     Dates: start: 20081001, end: 20100506
  2. INTERFERON [Concomitant]
     Indication: MULTIPLE SCLEROSIS

REACTIONS (10)
  - ARRHYTHMIA [None]
  - DYSARTHRIA [None]
  - FACIAL PALSY [None]
  - HEADACHE [None]
  - MUSCLE SPASMS [None]
  - NECK PAIN [None]
  - PRODUCT SUBSTITUTION ISSUE [None]
  - SYNCOPE [None]
  - TRANSIENT ISCHAEMIC ATTACK [None]
  - VERTIGO [None]
